FAERS Safety Report 25394625 (Version 1)
Quarter: 2025Q2

REPORT INFORMATION
  Report Type: Spontaneous
  Country: CN (occurrence: CN)
  Receive Date: 20250604
  Receipt Date: 20250604
  Transmission Date: 20250716
  Serious: Yes (Hospitalization, Other)
  Sender: BAXTER
  Company Number: None

PATIENT
  Age: 54 Year
  Sex: Female
  Weight: 59 kg

DRUGS (4)
  1. CYCLOPHOSPHAMIDE [Suspect]
     Active Substance: CYCLOPHOSPHAMIDE
     Indication: Breast cancer female
     Dosage: 1 G, EVERY 3 WK (1 DOSE IN 21 DAYS)
     Route: 041
     Dates: start: 20250430, end: 20250430
  2. SODIUM CHLORIDE [Suspect]
     Active Substance: SODIUM CHLORIDE
     Dosage: 100 ML, EVERY 3 WK ( (0.9 % INJECTION COMBINED WITH EPIRUBICIN)
     Route: 041
     Dates: start: 20250430, end: 20250430
  3. SODIUM CHLORIDE [Suspect]
     Active Substance: SODIUM CHLORIDE
     Dosage: 50 ML, EVERY 3 WK (0.9 % INJECTION COMBINED WITH CYCLOPHOSPHAMIDE)
     Route: 041
     Dates: start: 20250430, end: 20250430
  4. EPIRUBICIN HYDROCHLORIDE [Suspect]
     Active Substance: EPIRUBICIN HYDROCHLORIDE
     Indication: Breast cancer female
     Dosage: 150 MG, EVERY 3 WK (1 DOSE IN 21 DAYS)
     Route: 041
     Dates: start: 20250430, end: 20250430

REACTIONS (6)
  - Myelosuppression [Recovered/Resolved]
  - Asthenia [Unknown]
  - Fatigue [Unknown]
  - Pyrexia [Recovered/Resolved]
  - Oropharyngeal pain [Recovering/Resolving]
  - Discomfort [Unknown]

NARRATIVE: CASE EVENT DATE: 20250513
